FAERS Safety Report 18941249 (Version 3)
Quarter: 2021Q2

REPORT INFORMATION
  Report Type: Spontaneous
  Country: IT (occurrence: IT)
  Receive Date: 20210225
  Receipt Date: 20210407
  Transmission Date: 20210717
  Serious: Yes (Other)
  Sender: FDA-Public Use
  Company Number: IT-PFIZER INC-2021158955

PATIENT
  Age: 61 Year
  Sex: Male

DRUGS (11)
  1. PACLITAXEL. [Suspect]
     Active Substance: PACLITAXEL
     Indication: KAPOSI^S SARCOMA
     Dosage: 100 MG/M2, WEEKLY (13 ADMINISTRATIONS)
     Route: 042
     Dates: start: 20170510, end: 201708
  2. PREDNISONE. [Suspect]
     Active Substance: PREDNISONE
     Indication: MYASTHENIA GRAVIS
     Dosage: 65 MG, DAILY, 65; 0.60 MG/KG/DAY
     Route: 048
     Dates: start: 201510, end: 201512
  3. PREDNISONE. [Suspect]
     Active Substance: PREDNISONE
     Dosage: 5 MG, DAILY; TAPERED
     Route: 048
     Dates: start: 2017, end: 2017
  4. PREDNISONE. [Suspect]
     Active Substance: PREDNISONE
     Dosage: 30 MG, 1X/DAY; TAPERED 0.32MG/KG/DAY
     Dates: start: 201701, end: 20170309
  5. PREDNISONE. [Suspect]
     Active Substance: PREDNISONE
     Dosage: 50 MG, DAILY,  0.53 MG/KG/DAY
     Route: 048
     Dates: start: 2016
  6. PYRIDOSTIGMINE [Concomitant]
     Active Substance: PYRIDOSTIGMINE
     Dosage: 90 MG, 4X/DAY
  7. AZATHIOPRINE. [Suspect]
     Active Substance: AZATHIOPRINE
     Indication: MYASTHENIA GRAVIS
     Dosage: 150 MG, 1X/DAY
     Route: 065
     Dates: start: 201512
  8. PREDNISONE. [Suspect]
     Active Substance: PREDNISONE
     Dosage: 62.5 MILLIGRAM DAILY; 0.63 MG/KG/DAY
     Route: 065
     Dates: start: 201512, end: 201610
  9. PYRIDOSTIGMINE [Concomitant]
     Active Substance: PYRIDOSTIGMINE
     Indication: MYASTHENIA GRAVIS
     Dosage: 60 MG, 4X/DAY
     Route: 065
     Dates: start: 201510
  10. AZATHIOPRINE. [Suspect]
     Active Substance: AZATHIOPRINE
     Dosage: 175 MG, 1X/DAY
     Dates: start: 201610
  11. AZATHIOPRINE. [Suspect]
     Active Substance: AZATHIOPRINE
     Dosage: 200 MG, 1X/DAY

REACTIONS (3)
  - Pulmonary embolism [Recovered/Resolved]
  - Axonal neuropathy [Recovering/Resolving]
  - Human herpesvirus 8 infection [Recovering/Resolving]

NARRATIVE: CASE EVENT DATE: 201610
